FAERS Safety Report 14436419 (Version 1)
Quarter: 2018Q1

REPORT INFORMATION
  Report Type: Report from Study
  Country: US (occurrence: US)
  Receive Date: 20180125
  Receipt Date: 20180125
  Transmission Date: 20180509
  Serious: Yes (Hospitalization, Other)
  Sender: FDA-Public Use
  Company Number: US-ARIAD PHARMACEUTICALS, INC-2017US009063

PATIENT
  Sex: Male

DRUGS (2)
  1. PONATINIB [Suspect]
     Active Substance: PONATINIB
     Indication: ACUTE LYMPHOCYTIC LEUKAEMIA
     Dosage: 30 MG, QD
     Route: 048
     Dates: start: 201709
  2. PONATINIB [Suspect]
     Active Substance: PONATINIB
     Dosage: 30 MG, QD
     Route: 065
     Dates: start: 201710

REACTIONS (8)
  - Hospitalisation [Unknown]
  - Anaemia folate deficiency [Unknown]
  - Anaemia vitamin B12 deficiency [Unknown]
  - Rash [Recovered/Resolved]
  - Meningitis chemical [Unknown]
  - Aspartate aminotransferase increased [Recovered/Resolved]
  - Off label use [Unknown]
  - Neuropathy peripheral [Recovering/Resolving]
